FAERS Safety Report 5116218-9 (Version None)
Quarter: 2006Q3

REPORT INFORMATION
  Report Type: 
  Country: None (occurrence: None)
  Receive Date: 20060925
  Receipt Date: 20060919
  Transmission Date: 20061208
  Serious: Yes (Other)
  Sender: FDA-Public Use
  Company Number: S06-USA-03296-01

PATIENT
  Age: 75 Year
  Sex: Male

DRUGS (4)
  1. THEOPHYLLINE [Suspect]
     Dosage: 100 MG Q4HR PO
     Route: 048
     Dates: start: 20060801, end: 20060801
  2. LEXAPRO [Concomitant]
  3. PREDNISONE TAB [Concomitant]
  4. FLOMAX [Concomitant]

REACTIONS (4)
  - DRUG INEFFECTIVE [None]
  - DYSPNOEA [None]
  - OXYGEN SATURATION DECREASED [None]
  - RALES [None]
